FAERS Safety Report 16681306 (Version 4)
Quarter: 2025Q1

REPORT INFORMATION
  Report Type: Spontaneous
  Country: FR (occurrence: FR)
  Receive Date: 20190808
  Receipt Date: 20250314
  Transmission Date: 20250408
  Serious: Yes (Hospitalization, Other)
  Sender: AUROBINDO
  Company Number: FR-AUROBINDO-AUR-APL-2019-052520

PATIENT
  Age: 72 Year
  Sex: Male

DRUGS (3)
  1. AMOXICILLIN [Suspect]
     Active Substance: AMOXICILLIN
     Indication: Cardiac valve vegetation
     Route: 065
  2. DOXYCYCLINE [Suspect]
     Active Substance: DOXYCYCLINE
     Indication: Cardiac valve vegetation
     Route: 065
  3. GENTAMICIN [Suspect]
     Active Substance: GENTAMICIN
     Indication: Cardiac valve vegetation
     Route: 065

REACTIONS (5)
  - Embolic stroke [Unknown]
  - Brain abscess [Recovered/Resolved]
  - Cardiac valve fibroelastoma [Unknown]
  - Off label use [Unknown]
  - Product use in unapproved indication [Unknown]
